FAERS Safety Report 13057198 (Version 1)
Quarter: 2016Q4

REPORT INFORMATION
  Report Type: Spontaneous
  Country: US (occurrence: US)
  Receive Date: 20161223
  Receipt Date: 20161223
  Transmission Date: 20170207
  Serious: No
  Sender: FDA-Public Use
  Company Number: US-PAR PHARMACEUTICAL, INC-2016SCPR015169

PATIENT

DRUGS (1)
  1. MORPHINE SULFATE. [Suspect]
     Active Substance: MORPHINE SULFATE
     Indication: PAIN
     Dosage: UNK UNK, UNKNOWN
     Route: 065

REACTIONS (2)
  - Product quality issue [Unknown]
  - Drug ineffective [Unknown]
